FAERS Safety Report 19475820 (Version 1)
Quarter: 2021Q2

REPORT INFORMATION
  Report Type: Spontaneous
  Country: FR (occurrence: FR)
  Receive Date: 20210630
  Receipt Date: 20210630
  Transmission Date: 20210717
  Serious: Yes (Death)
  Sender: FDA-Public Use
  Company Number: FR-SUN PHARMACEUTICAL INDUSTRIES LTD-2021RR-302541

PATIENT
  Age: 60 Year
  Sex: Male
  Weight: 101 kg

DRUGS (5)
  1. NEBIVOLOL. [Concomitant]
     Active Substance: NEBIVOLOL
     Indication: PRODUCT USED FOR UNKNOWN INDICATION
     Dosage: UNK
     Route: 065
  2. RISPERIDONE. [Suspect]
     Active Substance: RISPERIDONE
     Indication: PARANOIA
     Dosage: 6 MILLIGRAM, DAILY, 2MG IN THE MORNING, 4 MG IN THE EVENING
     Route: 048
     Dates: start: 202104, end: 20210503
  3. COMIRNATY [Suspect]
     Active Substance: TOZINAMERAN
     Indication: COVID-19 IMMUNISATION
     Dosage: 1 DOSAGE FORM, UNK
     Route: 030
     Dates: start: 20210416, end: 20210416
  4. TIAPRIDAL, SOLUTION BUVABLE EN GOUTTES [Suspect]
     Active Substance: TIAPRIDE HYDROCHLORIDE
     Indication: PARANOIA
     Dosage: 200 MILLIGRAM, DAILY, 100MG IN THE MORNING AND IN THE EVENING
     Route: 048
     Dates: start: 202104
  5. VALIUM [Suspect]
     Active Substance: DIAZEPAM
     Indication: AGITATION
     Dosage: 30 GTT DROPS, DAILY
     Route: 048
     Dates: start: 20210404

REACTIONS (1)
  - Sudden death [Fatal]

NARRATIVE: CASE EVENT DATE: 20210505
